FAERS Safety Report 9538024 (Version 2)
Quarter: 2013Q4

REPORT INFORMATION
  Report Type: Spontaneous
  Country: FR (occurrence: FR)
  Receive Date: 20130919
  Receipt Date: 20131015
  Transmission Date: 20140711
  Serious: Yes (Life-Threatening, Hospitalization)
  Sender: FDA-Public Use
  Company Number: FR-ROCHE-1278396

PATIENT
  Sex: Male
  Weight: 75 kg

DRUGS (1)
  1. ROACTEMRA [Suspect]
     Indication: RHEUMATOID ARTHRITIS
     Dosage: TOTAL MONTHLY DOSE: 650 MG
     Route: 041
     Dates: start: 20121001

REACTIONS (3)
  - Dyspnoea [Unknown]
  - Ventricular tachycardia [Recovering/Resolving]
  - Myocardial infarction [Recovering/Resolving]
